FAERS Safety Report 5225618-8 (Version None)
Quarter: 2007Q1

REPORT INFORMATION
  Report Type: 
  Country: None (occurrence: None)
  Receive Date: 20061201
  Receipt Date: 20060911
  Transmission Date: 20070707
  Serious: No
  Sender: FDA-Public Use
  Company Number: US200609002851

PATIENT
  Age: 52 Year
  Sex: Female
  Weight: 104.3 kg

DRUGS (4)
  1. CYMBALTA [Suspect]
     Dates: start: 20060816
  2. MAGNESIUM (MAGNESIUM) [Concomitant]
  3. DETROL - SLOW RELEASE (TOLTERODINE L-TARTRATE) [Concomitant]
  4. VALTREX [Concomitant]

REACTIONS (3)
  - HEADACHE [None]
  - MIGRAINE [None]
  - VISUAL DISTURBANCE [None]
